FAERS Safety Report 6341953-4 (Version None)
Quarter: 2009Q3

REPORT INFORMATION
  Report Type: 
  Country: None (occurrence: None)
  Receive Date: 20090904
  Receipt Date: 20090826
  Transmission Date: 20100115
  Serious: Yes (Hospitalization, Disabling, Other)
  Sender: FDA-Public Use
  Company Number: AT-AMGEN-QUU359306

PATIENT
  Sex: Male
  Weight: 100 kg

DRUGS (10)
  1. NEUPOGEN [Suspect]
     Indication: CHEMOTHERAPY
     Route: 058
     Dates: start: 20090727, end: 20090730
  2. CISPLATIN [Concomitant]
  3. ETOPOSIDE [Concomitant]
  4. BLEOMYCIN SULFATE [Concomitant]
     Route: 042
     Dates: start: 20090731, end: 20090731
  5. PANTOPRAZOLE SODIUM [Concomitant]
     Route: 048
     Dates: start: 20090603
  6. BISOPROLOL FUMARATE [Concomitant]
     Route: 048
     Dates: start: 20090603
  7. CITALOPRAM HYDROBROMIDE [Concomitant]
     Route: 048
     Dates: start: 20060101
  8. FORTECORTIN [Concomitant]
     Route: 048
     Dates: start: 20090729, end: 20090731
  9. PASPERTIN [Concomitant]
  10. BLEOMYCIN SULFATE [Concomitant]
     Route: 042
     Dates: start: 20090731, end: 20090731

REACTIONS (4)
  - ANGIOPATHY [None]
  - DEEP VEIN THROMBOSIS [None]
  - PERIPHERAL EMBOLISM [None]
  - PERIPHERAL ISCHAEMIA [None]
